FAERS Safety Report 21453810 (Version 2)
Quarter: 2022Q4

REPORT INFORMATION
  Report Type: Spontaneous
  Country: IR (occurrence: IR)
  Receive Date: 20221013
  Receipt Date: 20221014
  Transmission Date: 20230113
  Serious: Yes (Disabling, Other)
  Sender: FDA-Public Use
  Company Number: IR-MLMSERVICE-20221005-3838635-6

PATIENT
  Age: 59 Year
  Sex: Male

DRUGS (8)
  1. PRAMIPEXOLE [Suspect]
     Active Substance: PRAMIPEXOLE
     Indication: Parkinson^s disease
  2. PRAMIPEXOLE [Suspect]
     Active Substance: PRAMIPEXOLE
  3. PRAMIPEXOLE [Suspect]
     Active Substance: PRAMIPEXOLE
  4. PRAMIPEXOLE [Suspect]
     Active Substance: PRAMIPEXOLE
  5. CARBIDOPA\LEVODOPA [Suspect]
     Active Substance: CARBIDOPA\LEVODOPA
     Indication: Parkinson^s disease
     Dosage: 250/25 MG
  6. TRIHEXYPHENIDYL [Concomitant]
     Active Substance: TRIHEXYPHENIDYL
     Indication: Parkinson^s disease
  7. TRIHEXYPHENIDYL [Concomitant]
     Active Substance: TRIHEXYPHENIDYL
     Dosage: TAPERED OVER THE NEXT YEAR
  8. SELEGILINE [Concomitant]
     Active Substance: SELEGILINE
     Indication: Parkinson^s disease

REACTIONS (2)
  - Drug withdrawal syndrome [Not Recovered/Not Resolved]
  - Parkinsonian gait [Not Recovered/Not Resolved]
